FAERS Safety Report 11056568 (Version 2)
Quarter: 2015Q2

REPORT INFORMATION
  Report Type: Spontaneous
  Country: US (occurrence: US)
  Receive Date: 20150422
  Receipt Date: 20150524
  Transmission Date: 20150821
  Serious: No
  Sender: FDA-Public Use
  Company Number: US-JNJFOC-20141102265

PATIENT
  Sex: Female
  Weight: 104.33 kg

DRUGS (1)
  1. INVOKANA [Suspect]
     Active Substance: CANAGLIFLOZIN
     Indication: PRODUCT USED FOR UNKNOWN INDICATION
     Dosage: INITIAL DOSE: 120 DAYS PRIOR TO THE DATE OF THIS REPORT
     Route: 048
     Dates: start: 2014

REACTIONS (1)
  - Vision blurred [Recovering/Resolving]

NARRATIVE: CASE EVENT DATE: 2014
